FAERS Safety Report 7938947-1 (Version None)
Quarter: 2011Q4

REPORT INFORMATION
  Report Type: 
  Country: None (occurrence: None)
  Receive Date: 20111124
  Receipt Date: 20111121
  Transmission Date: 20120403
  Serious: No
  Sender: FDA-Public Use
  Company Number: US-PFIZER INC-2011284908

PATIENT
  Sex: Male
  Weight: 59 kg

DRUGS (8)
  1. ACETAMINOPHEN [Concomitant]
     Dosage: 500 MG, UNK
  2. ACETYLSALICYLIC ACID [Concomitant]
     Dosage: 81 MG, UNK
  3. FLECTOR [Suspect]
     Indication: PAIN
     Dosage: UNK, AS NEEDED
     Dates: start: 20110101
  4. VYTORIN [Concomitant]
     Dosage: 40 MG, UNK
  5. FLECTOR [Suspect]
     Indication: PAIN IN EXTREMITY
  6. XALATAN [Concomitant]
     Indication: GLAUCOMA
     Dosage: UNK
     Route: 047
  7. BONIVA [Concomitant]
     Indication: BONE DISORDER
     Dosage: UNK
  8. CARVEDILOL [Concomitant]
     Dosage: UNK

REACTIONS (4)
  - APPLICATION SITE RASH [None]
  - APPLICATION SITE BURN [None]
  - APPLICATION SITE SCAB [None]
  - PRURITUS [None]
